FAERS Safety Report 10273996 (Version 1)
Quarter: 2014Q3

REPORT INFORMATION
  Report Type: Spontaneous
  Country: US (occurrence: US)
  Receive Date: 20140702
  Receipt Date: 20140702
  Transmission Date: 20150326
  Serious: Yes (Other)
  Sender: FDA-Public Use
  Company Number: US-ACTAVIS-2014-14154

PATIENT
  Sex: Female

DRUGS (8)
  1. ANAKINRA [Concomitant]
     Active Substance: ANAKINRA
     Indication: JUVENILE IDIOPATHIC ARTHRITIS
     Dosage: UNK, UNKNOWN
     Route: 065
     Dates: start: 20110919, end: 20130522
  2. CYCLOSPORIN [Concomitant]
     Active Substance: CYCLOSPORINE
     Indication: JUVENILE IDIOPATHIC ARTHRITIS
     Dosage: UNK, UNKNOWN
     Route: 065
     Dates: start: 201311
  3. CANAKINUMAB [Concomitant]
     Active Substance: CANAKINUMAB
     Indication: HISTIOCYTOSIS HAEMATOPHAGIC
  4. PREDNISOLONE (WATSON LABORATORIES) [Suspect]
     Active Substance: PREDNISOLONE
     Indication: JUVENILE IDIOPATHIC ARTHRITIS
     Dosage: 5 ML, BID
     Route: 048
     Dates: start: 20110904, end: 201402
  5. PREDNISOLONE (WATSON LABORATORIES) [Suspect]
     Active Substance: PREDNISOLONE
     Indication: HISTIOCYTOSIS HAEMATOPHAGIC
  6. CANAKINUMAB [Concomitant]
     Active Substance: CANAKINUMAB
     Indication: JUVENILE IDIOPATHIC ARTHRITIS
     Dosage: UNK, UNKNOWN
     Route: 065
  7. CYCLOSPORIN [Concomitant]
     Active Substance: CYCLOSPORINE
     Indication: HISTIOCYTOSIS HAEMATOPHAGIC
  8. ANAKINRA [Concomitant]
     Active Substance: ANAKINRA
     Indication: HISTIOCYTOSIS HAEMATOPHAGIC

REACTIONS (2)
  - Osteonecrosis [Not Recovered/Not Resolved]
  - Growth retardation [Not Recovered/Not Resolved]
